FAERS Safety Report 21265210 (Version 12)
Quarter: 2023Q1

REPORT INFORMATION
  Report Type: Report from Study
  Country: MX (occurrence: MX)
  Receive Date: 20220829
  Receipt Date: 20230317
  Transmission Date: 20230418
  Serious: Yes (Hospitalization, Other)
  Sender: FDA-Public Use
  Company Number: MX-NOVARTISPH-NVSC2022MX192734

PATIENT
  Sex: Female
  Weight: 67 kg

DRUGS (2)
  1. KISQALI [Suspect]
     Active Substance: RIBOCICLIB
     Indication: Breast cancer
     Dosage: UNK
     Route: 048
     Dates: start: 202110
  2. KISQALI [Suspect]
     Active Substance: RIBOCICLIB
     Dosage: UNK
     Route: 048

REACTIONS (38)
  - Illness [Unknown]
  - Loss of consciousness [Unknown]
  - Thrombosis [Unknown]
  - Paraparesis [Not Recovered/Not Resolved]
  - Fall [Unknown]
  - Pain in extremity [Recovered/Resolved]
  - Syncope [Unknown]
  - Weight decreased [Recovered/Resolved]
  - Thirst [Unknown]
  - Hunger [Unknown]
  - Stress [Unknown]
  - Eating disorder [Unknown]
  - Fear-related avoidance of activities [Unknown]
  - Constipation [Unknown]
  - Herpes virus infection [Unknown]
  - Limb injury [Recovered/Resolved]
  - Gait disturbance [Unknown]
  - Weight increased [Recovering/Resolving]
  - Aversion [Unknown]
  - Depressed mood [Unknown]
  - Abdominal hernia [Unknown]
  - Hypoaesthesia [Unknown]
  - Insomnia [Unknown]
  - Food aversion [Unknown]
  - Blood pressure decreased [Unknown]
  - Ill-defined disorder [Unknown]
  - Skin discolouration [Unknown]
  - Depression [Unknown]
  - Lung disorder [Unknown]
  - Anger [Unknown]
  - Feeling abnormal [Unknown]
  - Pigmentation disorder [Unknown]
  - Lipoma [Unknown]
  - Peripheral swelling [Unknown]
  - Fatigue [Unknown]
  - Blood creatinine increased [Unknown]
  - Xerosis [Unknown]
  - Abdominal pain upper [Unknown]
